FAERS Safety Report 17778196 (Version 2)
Quarter: 2020Q2

REPORT INFORMATION
  Report Type: Spontaneous
  Country: US (occurrence: US)
  Receive Date: 20200513
  Receipt Date: 20200617
  Transmission Date: 20200714
  Serious: Yes (Hospitalization, Other)
  Sender: FDA-Public Use
  Company Number: US-SA-2020SA123303

PATIENT

DRUGS (21)
  1. ALPHA LIPOIC ACID [Concomitant]
     Active Substance: .ALPHA.-LIPOIC ACID
     Dosage: 300 MG, QD
  2. DULOXETINE. [Concomitant]
     Active Substance: DULOXETINE
     Dosage: 30 MG, QD
  3. AMYLASE/LIPASE/PROTEASE [Concomitant]
     Active Substance: AMYLASE\LIPASE\PROTEASE
     Dosage: 2400 UNK, TID
  4. METOPROLOL. [Concomitant]
     Active Substance: METOPROLOL
     Dosage: 1.25 MG, BID
  5. PLAVIX [Suspect]
     Active Substance: CLOPIDOGREL BISULFATE
     Dosage: UNK
  6. PREDNISONE. [Concomitant]
     Active Substance: PREDNISONE
     Dosage: 10 MG, QD
  7. FERROUS SULFATE. [Concomitant]
     Active Substance: FERROUS SULFATE
     Dosage: UNK
  8. LEVOTHYROXINE. [Concomitant]
     Active Substance: LEVOTHYROXINE
     Dosage: 50 MG
  9. LIDOCAINE. [Concomitant]
     Active Substance: LIDOCAINE
     Dosage: UNK UNK, PRN, UP TO 3 PATCHES DAILY
  10. PLAVIX [Suspect]
     Active Substance: CLOPIDOGREL BISULFATE
     Dosage: 75 MG
  11. VITAMIN D NOS [Concomitant]
     Active Substance: VITAMIN D NOS
     Dosage: 2000 UNITS
  12. FOLIC ACID. [Concomitant]
     Active Substance: FOLIC ACID
     Dosage: 1 MG
  13. PROLIA [Concomitant]
     Active Substance: DENOSUMAB
     Dosage: 60 MG, Q6M
  14. CALCIUM [Concomitant]
     Active Substance: CALCIUM
     Dosage: 1200 UNITS
  15. INSULIN DETEMIR [Concomitant]
     Active Substance: INSULIN DETEMIR
     Dosage: UNK
  16. INSULIN [Concomitant]
     Active Substance: INSULIN NOS
     Dosage: UNK (U-100)
  17. ELIQUIS [Suspect]
     Active Substance: APIXABAN
     Dosage: DOSE INCREASED
     Route: 048
  18. LIDOCAINE. [Concomitant]
     Active Substance: LIDOCAINE
     Dosage: UNK UNK, PRN (OINTMENT)
  19. ATORVASTATIN [Concomitant]
     Active Substance: ATORVASTATIN
     Dosage: 20 MG, QD
  20. ESCITALOPRAM OXALATE. [Concomitant]
     Active Substance: ESCITALOPRAM OXALATE
     Dosage: 10 MG, QD
  21. ELIQUIS [Suspect]
     Active Substance: APIXABAN
     Indication: FACTOR V DEFICIENCY
     Dosage: 5 MG, BID
     Route: 048

REACTIONS (8)
  - Unevaluable event [Unknown]
  - Pain [Unknown]
  - Stent placement [Unknown]
  - Multiple fractures [Unknown]
  - Pancreatic disorder [Unknown]
  - Renal disorder [Unknown]
  - Surgery [Unknown]
  - Diabetes mellitus [Unknown]
